FAERS Safety Report 9820117 (Version 1)
Quarter: 2014Q1

REPORT INFORMATION
  Report Type: Spontaneous
  Country: US (occurrence: None)
  Receive Date: 20140113
  Receipt Date: 20140113
  Transmission Date: 20141002
  Serious: Yes (Disabling, Other)
  Sender: FDA-Public Use
  Company Number: None

PATIENT
  Age: 49 Year
  Sex: Female
  Weight: 54.43 kg

DRUGS (2)
  1. BOTOX [Suspect]
     Indication: MIGRAINE
     Dosage: 2 VIALS, ONCE, INJECTED TO HEAD, FACE, NECK
  2. BOTOX [Suspect]
     Indication: NECK PAIN
     Dosage: 2 VIALS, ONCE, INJECTED TO HEAD, FACE, NECK

REACTIONS (10)
  - Neck pain [None]
  - Torticollis [None]
  - Muscle spasms [None]
  - Swelling face [None]
  - Eye swelling [None]
  - Fatigue [None]
  - Pain [None]
  - Nausea [None]
  - Visual impairment [None]
  - Migraine [None]
